FAERS Safety Report 7815748-6 (Version None)
Quarter: 2011Q4

REPORT INFORMATION
  Report Type: 
  Country: None (occurrence: None)
  Receive Date: 20111014
  Receipt Date: 20111010
  Transmission Date: 20120403
  Serious: Yes (Other)
  Sender: FDA-Public Use
  Company Number: AU-ABBOTT-11P-008-0862433-00

PATIENT
  Sex: Male

DRUGS (1)
  1. LIPIDIL [Suspect]
     Indication: PRODUCT USED FOR UNKNOWN INDICATION

REACTIONS (5)
  - GASTROOESOPHAGEAL REFLUX DISEASE [None]
  - APNOEA [None]
  - ABDOMINAL RIGIDITY [None]
  - ABDOMINAL DISTENSION [None]
  - CHOKING [None]
